FAERS Safety Report 17001187 (Version 1)
Quarter: 2019Q4

REPORT INFORMATION
  Report Type: Spontaneous
  Country: US (occurrence: US)
  Receive Date: 20191106
  Receipt Date: 20191106
  Transmission Date: 20200122
  Serious: No
  Sender: FDA-Public Use
  Company Number: US-SA-2019SA305410

PATIENT
  Age: 50 Year
  Sex: Male

DRUGS (1)
  1. DUPIXENT [Suspect]
     Active Substance: DUPILUMAB
     Indication: ECZEMA NUMMULAR
     Dosage: 300 MG, QOW
     Route: 058
     Dates: start: 201908

REACTIONS (3)
  - Dermatitis [Not Recovered/Not Resolved]
  - Pruritus [Not Recovered/Not Resolved]
  - Injection site reaction [Recovering/Resolving]

NARRATIVE: CASE EVENT DATE: 201910
